FAERS Safety Report 15452887 (Version 1)
Quarter: 2018Q4

REPORT INFORMATION
  Report Type: Spontaneous
  Country: DE (occurrence: DE)
  Receive Date: 20181001
  Receipt Date: 20181001
  Transmission Date: 20190204
  Serious: Yes (Life-Threatening, Hospitalization, Disabling, Other)
  Sender: FDA-Public Use
  Company Number: DE-JNJFOC-20180714243

PATIENT
  Age: 77 Year
  Sex: Male
  Weight: 84 kg

DRUGS (7)
  1. XARELTO [Suspect]
     Active Substance: RIVAROXABAN
     Indication: ATRIAL FIBRILLATION
     Route: 048
     Dates: start: 2014, end: 20180610
  2. METOHEXAL COMP [Concomitant]
     Active Substance: METOPROLOL SUCCINATE
     Indication: HYPERTENSION
     Route: 048
  3. BERLOSIN [Concomitant]
     Active Substance: METAMIZOLE
     Route: 048
  4. TORASEMID [Concomitant]
     Active Substance: TORSEMIDE
     Route: 048
  5. METFORMIN [Concomitant]
     Active Substance: METFORMIN HYDROCHLORIDE
     Indication: TYPE 2 DIABETES MELLITUS
     Route: 048
  6. VESIKUR [Concomitant]
     Active Substance: SOLIFENACIN SUCCINATE
     Route: 048
  7. GLIBENCLAMID [Concomitant]
     Active Substance: GLYBURIDE
     Indication: TYPE 2 DIABETES MELLITUS
     Route: 048

REACTIONS (11)
  - Cerebral haemorrhage [Unknown]
  - Hemiplegia [Unknown]
  - Aphasia [Unknown]
  - Hemiparesis [Unknown]
  - Mental disorder [Unknown]
  - Dysphonia [Unknown]
  - Brain oedema [Unknown]
  - Subdural haemorrhage [Unknown]
  - Dysphagia [Unknown]
  - Neurologic neglect syndrome [Unknown]
  - Facial paresis [Unknown]

NARRATIVE: CASE EVENT DATE: 20180610
